FAERS Safety Report 16557523 (Version 3)
Quarter: 2021Q1

REPORT INFORMATION
  Report Type: Report from Study
  Country: JP (occurrence: JP)
  Receive Date: 20190711
  Receipt Date: 20210317
  Transmission Date: 20210419
  Serious: Yes (Hospitalization, Other)
  Sender: FDA-Public Use
  Company Number: JP-CELLTRION INC.-2019JP020717

PATIENT

DRUGS (62)
  1. CT?P6 [Suspect]
     Active Substance: INVESTIGATIONAL BIOSIMILARS
     Dosage: 310 MILLIGRAM, QD
     Route: 041
     Dates: start: 20190717, end: 20190717
  2. CT?P6 [Suspect]
     Active Substance: INVESTIGATIONAL BIOSIMILARS
     Dosage: 310 MILLIGRAM, QD
     Route: 041
     Dates: start: 20191212, end: 20191212
  3. OXALIPLATIN. [Suspect]
     Active Substance: OXALIPLATIN
     Dosage: 78 MILLIGRAM, QD
     Route: 065
     Dates: start: 20190227, end: 20190227
  4. 5?FU [FLUOROURACIL] [Suspect]
     Active Substance: FLUOROURACIL
     Dosage: BOLUS 600MG, DIV 3600 MG
     Route: 042
     Dates: start: 20190122, end: 20190124
  5. 5?FU [FLUOROURACIL] [Suspect]
     Active Substance: FLUOROURACIL
     Dosage: UNK
     Route: 041
     Dates: start: 20190710, end: 20190712
  6. CT?P6 [Suspect]
     Active Substance: INVESTIGATIONAL BIOSIMILARS
     Dosage: 310 MILLIGRAM, QD
     Route: 041
     Dates: start: 20190724, end: 20190724
  7. CT?P6 [Suspect]
     Active Substance: INVESTIGATIONAL BIOSIMILARS
     Dosage: 310 MILLIGRAM, QD
     Route: 041
     Dates: start: 20190918, end: 20190918
  8. CT?P6 [Suspect]
     Active Substance: INVESTIGATIONAL BIOSIMILARS
     Dosage: 310 MILLIGRAM, QD
     Route: 041
     Dates: start: 20200108, end: 20200108
  9. CT?P6 [Suspect]
     Active Substance: INVESTIGATIONAL BIOSIMILARS
     Dosage: 310 MILLIGRAM, QD
     Route: 041
     Dates: start: 20200129, end: 20200129
  10. OXALIPLATIN. [Suspect]
     Active Substance: OXALIPLATIN
     Dosage: 100 MILLIGRAM, QD
     Route: 065
     Dates: start: 20190122, end: 20190122
  11. OXALIPLATIN. [Suspect]
     Active Substance: OXALIPLATIN
     Dosage: 78 MILLIGRAM, QD
     Route: 065
     Dates: start: 20190327, end: 20190327
  12. DEXAMETHASONE. [Suspect]
     Active Substance: DEXAMETHASONE
     Indication: PROPHYLAXIS OF NAUSEA AND VOMITING
     Dosage: 6.6 MILLIGRAM, QD, DAY1
     Route: 065
     Dates: start: 20180927, end: 20181126
  13. DEXAMETHASONE. [Suspect]
     Active Substance: DEXAMETHASONE
     Dosage: 6.6 MILLIGRAM, QD, DAY2, 3
     Route: 065
     Dates: start: 20190108, end: 20190329
  14. 5?FU [FLUOROURACIL] [Suspect]
     Active Substance: FLUOROURACIL
     Indication: HER2 POSITIVE GASTRIC CANCER
     Dosage: BOLUS 600MG, DIV 3600 MG
     Route: 042
     Dates: start: 20190108, end: 20190110
  15. 5?FU [FLUOROURACIL] [Suspect]
     Active Substance: FLUOROURACIL
     Dosage: UNK
     Route: 041
     Dates: start: 20190612, end: 20190624
  16. 5?FU [FLUOROURACIL] [Suspect]
     Active Substance: FLUOROURACIL
     Dosage: UNK
     Route: 041
     Dates: start: 20190918, end: 20190920
  17. CT?P6 [Suspect]
     Active Substance: INVESTIGATIONAL BIOSIMILARS
     Dosage: 310 MILLIGRAM, QD
     Route: 041
     Dates: start: 20190313, end: 20190313
  18. CT?P6 [Suspect]
     Active Substance: INVESTIGATIONAL BIOSIMILARS
     Dosage: 310 MILLIGRAM, QD
     Route: 041
     Dates: start: 20190403, end: 20190403
  19. CT?P6 [Suspect]
     Active Substance: INVESTIGATIONAL BIOSIMILARS
     Dosage: 310 MILLIGRAM, QD
     Route: 041
     Dates: start: 20190807, end: 20190807
  20. CT?P6 [Suspect]
     Active Substance: INVESTIGATIONAL BIOSIMILARS
     Dosage: 310 MILLIGRAM, QD
     Route: 041
     Dates: start: 20190828, end: 20190828
  21. DEXAMETHASONE. [Suspect]
     Active Substance: DEXAMETHASONE
     Dosage: 6.6 MILLIGRAM, QD, DAY2, 3
     Route: 065
     Dates: start: 20181127
  22. 5?FU [FLUOROURACIL] [Suspect]
     Active Substance: FLUOROURACIL
     Dosage: UNK
     Route: 041
     Dates: start: 20190501, end: 20190503
  23. CT?P6 [Suspect]
     Active Substance: INVESTIGATIONAL BIOSIMILARS
     Dosage: 310 MILLIGRAM, QD
     Route: 041
     Dates: start: 20190219, end: 20190219
  24. CT?P6 [Suspect]
     Active Substance: INVESTIGATIONAL BIOSIMILARS
     Dosage: 310 MILLIGRAM, QD
     Route: 041
     Dates: start: 20200311, end: 20200311
  25. OXALIPLATIN. [Suspect]
     Active Substance: OXALIPLATIN
     Dosage: 78 MILLIGRAM, QD
     Route: 065
     Dates: start: 20190213, end: 20190213
  26. DEXAMETHASONE. [Suspect]
     Active Substance: DEXAMETHASONE
     Dosage: 9.9 UNK
     Route: 065
     Dates: start: 20181127, end: 20190327
  27. 5?FU [FLUOROURACIL] [Suspect]
     Active Substance: FLUOROURACIL
     Dosage: UNK
     Route: 041
     Dates: start: 20190327, end: 20190329
  28. 5?FU [FLUOROURACIL] [Suspect]
     Active Substance: FLUOROURACIL
     Dosage: UNK
     Route: 041
     Dates: start: 20190416, end: 20190418
  29. 5?FU [FLUOROURACIL] [Suspect]
     Active Substance: FLUOROURACIL
     Dosage: UNK
     Route: 041
     Dates: start: 20190515, end: 20190517
  30. GRANISETRON [Concomitant]
     Active Substance: GRANISETRON
     Indication: PROPHYLAXIS OF NAUSEA AND VOMITING
     Dosage: UNK
     Dates: start: 20181127
  31. CT?P6 [Suspect]
     Active Substance: INVESTIGATIONAL BIOSIMILARS
     Dosage: 310 MILLIGRAM, QD
     Route: 041
     Dates: start: 20190515, end: 20190515
  32. CT?P6 [Suspect]
     Active Substance: INVESTIGATIONAL BIOSIMILARS
     Dosage: 310 MILLIGRAM, QD
     Route: 041
     Dates: start: 20200219, end: 20200219
  33. DEXAMETHASONE. [Suspect]
     Active Substance: DEXAMETHASONE
     Dosage: 6.6 MILLIGRAM, QD, DAY1
     Route: 065
     Dates: start: 20181127
  34. DEXAMETHASONE. [Suspect]
     Active Substance: DEXAMETHASONE
     Dosage: 9.9 UNK
     Route: 065
     Dates: start: 20190108, end: 20190329
  35. DEXAMETHASONE. [Suspect]
     Active Substance: DEXAMETHASONE
     Dosage: 6.6 MILLIGRAM, QD, DAY1
     Route: 065
     Dates: start: 20190416
  36. 5?FU [FLUOROURACIL] [Suspect]
     Active Substance: FLUOROURACIL
     Dosage: BOLUS 500MG, DIV 3000 MG
     Route: 042
     Dates: start: 20190213, end: 20190215
  37. 5?FU [FLUOROURACIL] [Suspect]
     Active Substance: FLUOROURACIL
     Dosage: BOLUS 500MG, DIV 3000 MG
     Route: 042
     Dates: start: 20190227, end: 20190301
  38. 5?FU [FLUOROURACIL] [Suspect]
     Active Substance: FLUOROURACIL
     Dosage: UNK
     Route: 041
     Dates: start: 20190724, end: 20190726
  39. CT?P6 [Suspect]
     Active Substance: INVESTIGATIONAL BIOSIMILARS
     Dosage: 310 MILLIGRAM, QD
     Route: 041
     Dates: start: 20190626, end: 20190626
  40. CT?P6 [Suspect]
     Active Substance: INVESTIGATIONAL BIOSIMILARS
     Dosage: 310 MILLIGRAM, QD
     Route: 041
     Dates: start: 20191009, end: 20191009
  41. OXALIPLATIN. [Suspect]
     Active Substance: OXALIPLATIN
     Indication: HER2 POSITIVE GASTRIC CANCER
     Dosage: 100 MILLIGRAM, QD
     Route: 065
     Dates: start: 20190108, end: 20190108
  42. 5?FU [FLUOROURACIL] [Suspect]
     Active Substance: FLUOROURACIL
     Dosage: UNK
     Route: 041
     Dates: start: 20190529, end: 20190531
  43. 5?FU [FLUOROURACIL] [Suspect]
     Active Substance: FLUOROURACIL
     Dosage: UNK
     Route: 041
     Dates: start: 20190821, end: 20190823
  44. CT?P6 [Suspect]
     Active Substance: INVESTIGATIONAL BIOSIMILARS
     Indication: HER2 POSITIVE GASTRIC CANCER
     Dosage: 310 MILLIGRAM, QD
     Route: 041
     Dates: start: 20190108, end: 20190108
  45. CT?P6 [Suspect]
     Active Substance: INVESTIGATIONAL BIOSIMILARS
     Dosage: 310 MILLIGRAM, QD
     Route: 041
     Dates: start: 20190129, end: 20190129
  46. CT?P6 [Suspect]
     Active Substance: INVESTIGATIONAL BIOSIMILARS
     Dosage: 310 MILLIGRAM, QD
     Route: 041
     Dates: start: 20190424, end: 20190424
  47. CT?P6 [Suspect]
     Active Substance: INVESTIGATIONAL BIOSIMILARS
     Dosage: 310 MILLIGRAM, QD
     Route: 041
     Dates: start: 20190605, end: 20190605
  48. CT?P6 [Suspect]
     Active Substance: INVESTIGATIONAL BIOSIMILARS
     Dosage: 310 MILLIGRAM, QD
     Route: 041
     Dates: start: 20191030, end: 20191030
  49. DEXAMETHASONE. [Suspect]
     Active Substance: DEXAMETHASONE
     Dosage: 6.6 MILLIGRAM, QD, DAY2, 3
     Route: 065
     Dates: start: 20181129, end: 20190329
  50. 5?FU [FLUOROURACIL] [Suspect]
     Active Substance: FLUOROURACIL
     Dosage: BOLUS 500MG, DIV 3000 MG
     Route: 042
     Dates: start: 20190313, end: 20190315
  51. 5?FU [FLUOROURACIL] [Suspect]
     Active Substance: FLUOROURACIL
     Dosage: UNK
     Route: 041
     Dates: start: 20190807, end: 20190809
  52. 5?FU [FLUOROURACIL] [Suspect]
     Active Substance: FLUOROURACIL
     Dosage: UNK
     Route: 041
     Dates: start: 20191002, end: 20191004
  53. LEVOFOLINATE [Suspect]
     Active Substance: LEVOLEUCOVORIN CALCIUM
     Indication: HER2 POSITIVE GASTRIC CANCER
     Dosage: UNK
     Route: 065
     Dates: start: 20180927
  54. CT?P6 [Suspect]
     Active Substance: INVESTIGATIONAL BIOSIMILARS
     Dosage: 310 MILLIGRAM, QD
     Route: 041
     Dates: start: 20191120, end: 20191120
  55. CT?P6 [Suspect]
     Active Substance: INVESTIGATIONAL BIOSIMILARS
     Dosage: 310 MILLIGRAM, QD
     Route: 041
     Dates: start: 20200311
  56. OXALIPLATIN. [Suspect]
     Active Substance: OXALIPLATIN
     Dosage: 78 MILLIGRAM, QD
     Route: 065
     Dates: start: 20190313, end: 20190313
  57. 5?FU [FLUOROURACIL] [Suspect]
     Active Substance: FLUOROURACIL
     Dosage: UNK
     Route: 041
     Dates: start: 20190626, end: 20190628
  58. 5?FU [FLUOROURACIL] [Suspect]
     Active Substance: FLUOROURACIL
     Dosage: UNK
     Route: 041
     Dates: start: 20190628, end: 20190630
  59. 5?FU [FLUOROURACIL] [Suspect]
     Active Substance: FLUOROURACIL
     Dosage: UNK
     Route: 041
     Dates: start: 20190904, end: 20190906
  60. 5?FU [FLUOROURACIL] [Suspect]
     Active Substance: FLUOROURACIL
     Dosage: UNK
     Route: 041
     Dates: start: 20191016, end: 20191018
  61. 5?FU [FLUOROURACIL] [Suspect]
     Active Substance: FLUOROURACIL
     Dosage: UNK
     Route: 041
     Dates: start: 20191030, end: 20191101
  62. PALONOSETRON HYDROCHLORIDE. [Concomitant]
     Active Substance: PALONOSETRON HYDROCHLORIDE
     Indication: PROPHYLAXIS OF NAUSEA AND VOMITING
     Dosage: UNK
     Dates: start: 20190108

REACTIONS (10)
  - Blood lactate dehydrogenase increased [Not Recovered/Not Resolved]
  - Nausea [Recovered/Resolved]
  - Pneumonia [Recovered/Resolved]
  - Platelet count decreased [Recovered/Resolved]
  - Underdose [Unknown]
  - Decreased appetite [Recovered/Resolved]
  - Anaemia [Not Recovered/Not Resolved]
  - Neuropathy peripheral [Recovering/Resolving]
  - Hyponatraemia [Not Recovered/Not Resolved]
  - Neutrophil count decreased [Recovered/Resolved]

NARRATIVE: CASE EVENT DATE: 20190108
